FAERS Safety Report 17940015 (Version 1)
Quarter: 2020Q2

REPORT INFORMATION
  Report Type: Spontaneous
  Country: CA (occurrence: CA)
  Receive Date: 20200625
  Receipt Date: 20200625
  Transmission Date: 20200714
  Serious: Yes (Disabling)
  Sender: FDA-Public Use
  Company Number: CA-SA-2020SA153941

PATIENT

DRUGS (13)
  1. ESOMEPRAZOLE. [Concomitant]
     Active Substance: ESOMEPRAZOLE MAGNESIUM
  2. AMLODIPINE [Concomitant]
     Active Substance: AMLODIPINE BESYLATE
  3. EXTRA STRENGTH ALLERGY RELIEF [Concomitant]
  4. JUBLIA [Concomitant]
     Active Substance: EFINACONAZOLE
  5. SPECTRO ECZEMACARE [Concomitant]
  6. PREDNISONE. [Concomitant]
     Active Substance: PREDNISONE
  7. ATORVASTATIN [Concomitant]
     Active Substance: ATORVASTATIN
  8. EZETIMIBE. [Concomitant]
     Active Substance: EZETIMIBE
  9. PRALUENT [Suspect]
     Active Substance: ALIROCUMAB
     Dosage: 150 MG, QOW
     Route: 058
  10. MYLAN NITRO SL [Concomitant]
     Active Substance: NITROGLYCERIN
  11. PRO-ISMN [Concomitant]
  12. SANDOZ-BISOPROLOL [Concomitant]
     Active Substance: BISOPROLOL FUMARATE
  13. SANDOZ-TAMSULOSIN [Concomitant]
     Active Substance: TAMSULOSIN

REACTIONS (1)
  - Hepatic steatosis [Unknown]
